FAERS Safety Report 24417360 (Version 2)
Quarter: 2025Q1

REPORT INFORMATION
  Report Type: Spontaneous
  Country: US (occurrence: US)
  Receive Date: 20241009
  Receipt Date: 20250217
  Transmission Date: 20250408
  Serious: No
  Sender: BLUEPRINT MEDICINES
  Company Number: US-Blueprint Medicines Corporation-4929

PATIENT
  Age: 64 Year
  Sex: Female

DRUGS (2)
  1. AYVAKIT [Suspect]
     Active Substance: AVAPRITINIB
     Indication: Systemic mastocytosis
     Route: 048
     Dates: start: 20240903
  2. AYVAKIT [Suspect]
     Active Substance: AVAPRITINIB
     Indication: Mastocytoma
     Route: 065
     Dates: start: 20240903

REACTIONS (3)
  - Fatigue [Unknown]
  - Stress [Unknown]
  - Gastrointestinal disorder [Unknown]
